FAERS Safety Report 4853577-6 (Version None)
Quarter: 2005Q4

REPORT INFORMATION
  Report Type: 
  Country: None (occurrence: None)
  Receive Date: 20051129
  Receipt Date: 20050913
  Transmission Date: 20060501
  Serious: No
  Sender: FDA-Public Use
  Company Number: WAES 0509USA01365

PATIENT
  Sex: Female
  Weight: 58.0604 kg

DRUGS (3)
  1. ZETIA [Suspect]
     Dosage: 10 MG DAILY PO
     Route: 048
     Dates: start: 20050901, end: 20050920
  2. ZETIA [Suspect]
     Dosage: 10 MG DAILY PO
     Route: 048
     Dates: start: 20051001, end: 20051001
  3. .. [Concomitant]

REACTIONS (1)
  - CONSTIPATION [None]
